FAERS Safety Report 16991883 (Version 3)
Quarter: 2019Q4

REPORT INFORMATION
  Report Type: Spontaneous
  Country: DE (occurrence: DE)
  Receive Date: 20191104
  Receipt Date: 20191205
  Transmission Date: 20200122
  Serious: Yes (Death, Hospitalization)
  Sender: FDA-Public Use
  Company Number: DE-ASTRAZENECA-2019SF55002

PATIENT
  Age: 77 Year
  Sex: Male
  Weight: 86 kg

DRUGS (2)
  1. DURVALUMAB. [Suspect]
     Active Substance: DURVALUMAB
     Indication: NON-SMALL CELL LUNG CANCER
     Route: 042
     Dates: start: 20190911
  2. DURVALUMAB. [Suspect]
     Active Substance: DURVALUMAB
     Indication: NON-SMALL CELL LUNG CANCER
     Route: 042
     Dates: start: 20190925

REACTIONS (7)
  - Condition aggravated [Fatal]
  - Dyspnoea [Fatal]
  - Respiratory gas exchange disorder [Fatal]
  - Multiple organ dysfunction syndrome [Fatal]
  - Immune-mediated pneumonitis [Fatal]
  - Acute respiratory distress syndrome [Fatal]
  - Hypoxia [Fatal]

NARRATIVE: CASE EVENT DATE: 20190926
